FAERS Safety Report 5615327-5 (Version None)
Quarter: 2008Q1

REPORT INFORMATION
  Report Type: 
  Country: None (occurrence: None)
  Receive Date: 20080204
  Receipt Date: 20080204
  Transmission Date: 20080703
  Serious: Yes (Hospitalization)
  Sender: FDA-Public Use
  Company Number: None

PATIENT
  Age: 26 Year
  Sex: Male

DRUGS (2)
  1. AMOXICILLIN [Suspect]
     Indication: INFECTION
     Dosage: 500MG TID PO
     Route: 048
     Dates: start: 20071122, end: 20071129
  2. OMEPRAZOLE [Suspect]
     Indication: GASTROOESOPHAGEAL REFLUX DISEASE
     Dosage: 20MG EVERY DAY PO
     Route: 048
     Dates: start: 20071101, end: 20071214

REACTIONS (4)
  - CELLULITIS [None]
  - DERMATITIS ALLERGIC [None]
  - DRUG HYPERSENSITIVITY [None]
  - RASH MACULO-PAPULAR [None]
